FAERS Safety Report 5813602-2 (Version None)
Quarter: 2008Q3

REPORT INFORMATION
  Report Type: 
  Country: None (occurrence: None)
  Receive Date: 20080716
  Receipt Date: 20080716
  Transmission Date: 20090109
  Serious: Yes (Hospitalization, Other)
  Sender: FDA-Public Use
  Company Number: None

PATIENT
  Age: 65 Year
  Sex: Female

DRUGS (4)
  1. HYDROCHLOROTHIAZIDE [Suspect]
     Dosage: 25MG
  2. HYDROCHLOROTHIAZIDE [Suspect]
     Dosage: 50MG DAILY
  3. HYZAAR [Suspect]
     Dosage: 100/25 DAILY
  4. LOSARTAN 100MG DAILY [Suspect]
     Dosage: 100 MG DAILY

REACTIONS (2)
  - BLOOD POTASSIUM DECREASED [None]
  - ILL-DEFINED DISORDER [None]
